FAERS Safety Report 4689754-7 (Version None)
Quarter: 2005Q2

REPORT INFORMATION
  Report Type: 
  Country: None (occurrence: None)
  Receive Date: 20050608
  Receipt Date: 20040916
  Transmission Date: 20051028
  Serious: No
  Sender: FDA-Public Use
  Company Number: 380813

PATIENT
  Age: 34 Year
  Sex: Male
  Weight: 70.3 kg

DRUGS (4)
  1. ACCUTANE [Suspect]
     Indication: ACNE CYSTIC
     Dosage: 40 MG DAILY ORAL
     Route: 048
     Dates: start: 20020820, end: 20030109
  2. CLARITIN [Concomitant]
  3. NAPROSYN [Concomitant]
  4. BENZOYL PEROXIDE [Concomitant]

REACTIONS (4)
  - ARTHRALGIA [None]
  - COLITIS ULCERATIVE [None]
  - DIARRHOEA [None]
  - STOMACH DISCOMFORT [None]
